FAERS Safety Report 25710011 (Version 2)
Quarter: 2025Q3

REPORT INFORMATION
  Report Type: Spontaneous
  Country: US (occurrence: US)
  Receive Date: 20250821
  Receipt Date: 20250912
  Transmission Date: 20251020
  Serious: No
  Sender: ROCHE
  Company Number: US-ROCHE-10000361031

PATIENT
  Age: 16 Year
  Sex: Female

DRUGS (1)
  1. ACTEMRA [Suspect]
     Active Substance: TOCILIZUMAB
     Indication: Optic neuritis
     Dosage: STRENGTH:162MG/0.9M
     Route: 058
     Dates: start: 20250808

REACTIONS (4)
  - Device defective [Unknown]
  - Off label use [Unknown]
  - No adverse event [Unknown]
  - Product preparation error [Unknown]

NARRATIVE: CASE EVENT DATE: 20250808
